FAERS Safety Report 5651936-5 (Version None)
Quarter: 2008Q1

REPORT INFORMATION
  Report Type: 
  Country: None (occurrence: None)
  Receive Date: 20080131
  Receipt Date: 20071029
  Transmission Date: 20080703
  Serious: No
  Sender: FDA-Public Use
  Company Number: US200710007363

PATIENT
  Age: 67 Year
  Sex: Female
  Weight: 79.4 kg

DRUGS (9)
  1. BYETTA [Suspect]
     Indication: TYPE 2 DIABETES MELLITUS
     Dosage: 5 UG, 2/D, SUBCUTANEOUS
     Route: 058
     Dates: start: 20050101
  2. METFORMIN HCL [Concomitant]
  3. AMITRIPTLINE HCL [Concomitant]
  4. ATENOLOL [Concomitant]
  5. ZETIA [Concomitant]
  6. VITAMIN B12 [Concomitant]
  7. ASCORBIC ACID [Concomitant]
  8. CALCIUM WITH VITAMIN D (CALCIUM PHOSPHATE, CALCIUM SODIUM LACTATE, ERG [Concomitant]
  9. VITAMIN E (HERBAL OIL NOS) [Concomitant]

REACTIONS (2)
  - SKIN ODOUR ABNORMAL [None]
  - WEIGHT DECREASED [None]
